FAERS Safety Report 10104498 (Version 1)
Quarter: 2014Q2

REPORT INFORMATION
  Report Type: Spontaneous
  Country: US (occurrence: US)
  Receive Date: 20140424
  Receipt Date: 20140424
  Transmission Date: 20141212
  Serious: Yes (Hospitalization, Other)
  Sender: FDA-Public Use
  Company Number: US-FRI-1000066699

PATIENT
  Age: 59 Year
  Sex: Female
  Weight: 77.11 kg

DRUGS (12)
  1. VIIBRYD [Suspect]
     Indication: DEPRESSION
     Dosage: 10 MG
     Route: 048
     Dates: start: 201212, end: 201212
  2. VIIBRYD [Suspect]
     Dosage: 20 MG
     Route: 048
     Dates: start: 201212, end: 201212
  3. VIIBRYD [Suspect]
     Indication: DEPRESSION
     Dosage: 40 MG
     Route: 048
     Dates: start: 201212, end: 20131113
  4. LANTUS [Concomitant]
  5. NOVOLOG [Concomitant]
  6. CALCIUM + VIT D [Concomitant]
     Dosage: 600
  7. ASPIRIN [Concomitant]
     Dosage: 81 MG
  8. LYRICA [Concomitant]
     Dosage: 150 MG
  9. LISINOPRIL [Concomitant]
     Dosage: 40 MG
  10. ANASTROZOLE [Concomitant]
     Dosage: 1 MG
  11. MORPHINE SULFATE ER [Concomitant]
     Dosage: 60 MG
  12. MORPHINE SULFATE IR [Concomitant]
     Dosage: 15 MG

REACTIONS (7)
  - Loss of consciousness [Recovered/Resolved]
  - Coordination abnormal [Recovered/Resolved]
  - Fall [Recovered/Resolved]
  - Memory impairment [Recovering/Resolving]
  - Hallucination, auditory [Recovered/Resolved]
  - Hallucination, visual [Recovered/Resolved]
  - Drug ineffective [Recovered/Resolved]
